FAERS Safety Report 4486935-2 (Version None)
Quarter: 2004Q4

REPORT INFORMATION
  Report Type: 
  Country: None (occurrence: None)
  Receive Date: 20041027
  Receipt Date: 20041022
  Transmission Date: 20050328
  Serious: Yes (Other)
  Sender: FDA-Public Use
  Company Number: PHBS2004BE14101

PATIENT
  Age: 57 Year
  Sex: Male

DRUGS (1)
  1. LESCOL XL [Suspect]
     Dosage: 80 MG/DAY
     Route: 048
     Dates: start: 20040301, end: 20040801

REACTIONS (1)
  - SERUM FERRITIN INCREASED [None]
